FAERS Safety Report 18174592 (Version 1)
Quarter: 2020Q3

REPORT INFORMATION
  Report Type: Spontaneous
  Country: US (occurrence: US)
  Receive Date: 20200819
  Receipt Date: 20200819
  Transmission Date: 20201103
  Serious: Yes (Other)
  Sender: FDA-Public Use
  Company Number: None

PATIENT
  Age: 76 Year
  Sex: Male

DRUGS (1)
  1. STIVARGA [Suspect]
     Active Substance: REGORAFENIB
     Indication: HEPATOCELLULAR CARCINOMA
     Dosage: ?          OTHER DOSE:4 TABLETS(160MG);?
     Route: 048
     Dates: start: 20200730, end: 20200811

REACTIONS (3)
  - Discomfort [None]
  - Palmar-plantar erythrodysaesthesia syndrome [None]
  - Pain [None]

NARRATIVE: CASE EVENT DATE: 20200803
